FAERS Safety Report 8438180-3 (Version None)
Quarter: 2012Q2

REPORT INFORMATION
  Report Type: 
  Country: None (occurrence: None)
  Receive Date: 20120614
  Receipt Date: 20120608
  Transmission Date: 20120825
  Serious: Yes (Death, Other)
  Sender: FDA-Public Use
  Company Number: AU-ROCHE-1071771

PATIENT
  Age: 40 Year
  Sex: Male

DRUGS (19)
  1. GABAPENTIN [Concomitant]
     Route: 048
  2. ASCORBIC ACID [Concomitant]
     Route: 048
  3. NILSTAT [Concomitant]
     Dosage: 2 DROPS
     Route: 048
  4. CELECOXIB [Concomitant]
     Route: 048
  5. METOCLOPRAMIDE [Concomitant]
     Route: 048
  6. AVASTIN [Suspect]
     Indication: GLIOBLASTOMA MULTIFORME
     Dates: start: 20120417
  7. DEXAMETHASONE [Concomitant]
     Dates: end: 20120228
  8. DEXAMETHASONE [Concomitant]
     Dosage: DOSE REDUCTION
     Dates: start: 20120326, end: 20120401
  9. DEXAMETHASONE [Concomitant]
     Dosage: REDUCED DOSE
     Dates: start: 20120229, end: 20120325
  10. LOSEC (AUSTRALIA) [Concomitant]
     Route: 048
     Dates: start: 20111107
  11. KENALOG [Concomitant]
     Dosage: 1 APPLICATION
     Route: 048
  12. ACETAMINOPHEN [Concomitant]
     Route: 048
  13. GABAPENTIN [Concomitant]
     Route: 048
  14. FLUOXETINE HCL [Concomitant]
     Route: 048
     Dates: start: 20020101
  15. FUNGILIN [Concomitant]
     Indication: PROPHYLAXIS
     Route: 048
  16. DEXAMETHASONE [Concomitant]
     Dosage: DISCONTINUED
     Dates: start: 20120402, end: 20120420
  17. CARBOPLATIN [Suspect]
     Indication: GLIOBLASTOMA MULTIFORME
     Dosage: DOSE OF CARBOPLATIN WAS DELAYED DUE TO HAEMATOLOGIC TOXICITY
     Dates: start: 20120417
  18. FLUOXETINE [Concomitant]
     Route: 048
  19. METHADONE HCL [Concomitant]
     Indication: PAIN
     Route: 048
     Dates: start: 20120302

REACTIONS (2)
  - PYREXIA [None]
  - WOUND [None]
